FAERS Safety Report 10241616 (Version 2)
Quarter: 2014Q2

REPORT INFORMATION
  Report Type: Spontaneous
  Country: US (occurrence: None)
  Receive Date: 20140613
  Receipt Date: 20140619
  Transmission Date: 20141212
  Serious: Yes (Hospitalization)
  Sender: FDA-Public Use
  Company Number: UNT-2014-001633

PATIENT
  Age: 66 Year
  Sex: Female
  Weight: 70.3 kg

DRUGS (2)
  1. TYVASO [Suspect]
     Indication: PULMONARY ARTERIAL HYPERTENSION
     Route: 055
     Dates: start: 20140505
  2. REVATIO (SILDENAFIL CITRATE) UNKNOWN [Concomitant]

REACTIONS (3)
  - Pneumonia [None]
  - Dermal cyst [None]
  - Implantable defibrillator replacement [None]
